FAERS Safety Report 23769107 (Version 1)
Quarter: 2024Q2

REPORT INFORMATION
  Report Type: Report from Study
  Country: NL (occurrence: NL)
  Receive Date: 20240422
  Receipt Date: 20240422
  Transmission Date: 20240715
  Serious: Yes (Other)
  Sender: FDA-Public Use
  Company Number: NL-MYLANLABS-2024M1017709

PATIENT
  Age: 34 Year
  Sex: Female

DRUGS (1)
  1. GLATIRAMER ACETATE [Suspect]
     Active Substance: GLATIRAMER ACETATE
     Indication: Relapsing-remitting multiple sclerosis
     Dosage: 40 MILLIGRAM, 3XW (40MG (3 TIMES PER WEEK))
     Route: 058
     Dates: start: 20200117

REACTIONS (5)
  - Abortion spontaneous [Unknown]
  - Injection site reaction [Not Recovered/Not Resolved]
  - Injection site irritation [Recovering/Resolving]
  - Product administered at inappropriate site [Unknown]
  - Maternal exposure during pregnancy [Unknown]

NARRATIVE: CASE EVENT DATE: 20240218
